FAERS Safety Report 15772949 (Version 1)
Quarter: 2018Q4

REPORT INFORMATION
  Report Type: Spontaneous
  Country: ES (occurrence: ES)
  Receive Date: 20181228
  Receipt Date: 20181228
  Transmission Date: 20190205
  Serious: Yes (Hospitalization)
  Sender: FDA-Public Use
  Company Number: ES-TEVA-2018-ES-991688

PATIENT
  Age: 79 Year
  Sex: Male

DRUGS (5)
  1. CLOPIDOGREL [Suspect]
     Active Substance: CLOPIDOGREL BISULFATE
     Route: 065
     Dates: start: 20180828
  2. LEUPRORELINA 45 MG INYECTABLE JERINGA PRECARGADA [Concomitant]
  3. TRINOMIA 100 MG/40 MG/10 MG CAPSULAS DURAS 28 C?PSULAS [Suspect]
     Active Substance: ASPIRIN\ATORVASTATIN CALCIUM\RAMIPRIL
     Indication: MYOCARDIAL ISCHAEMIA
     Route: 065
     Dates: start: 20180827
  4. OPTOVITE B12 1.000 MICROGRAMOS SOLUCI?N INYECTABLE , 5 AMPOLLAS DE 2 M [Concomitant]
  5. SILODYX 8 MG CAPSULAS DURAS , 30 C?PSULAS [Concomitant]

REACTIONS (2)
  - Anaemia [Recovered/Resolved]
  - Gastrointestinal haemorrhage [Recovered/Resolved]

NARRATIVE: CASE EVENT DATE: 20180917
